FAERS Safety Report 10253028 (Version 1)
Quarter: 2014Q2

REPORT INFORMATION
  Report Type: Spontaneous
  Country: US (occurrence: None)
  Receive Date: 20140619
  Receipt Date: 20140619
  Transmission Date: 20141212
  Serious: Yes (Death)
  Sender: FDA-Public Use
  Company Number: None

PATIENT
  Age: 73 Year
  Sex: Male
  Weight: 107.1 kg

DRUGS (1)
  1. NITROFURANTOIN [Suspect]
     Indication: INFECTION PROPHYLAXIS
     Route: 048
     Dates: start: 20090215, end: 20140121

REACTIONS (1)
  - Respiratory distress [None]
